FAERS Safety Report 5341504-7 (Version None)
Quarter: 2007Q2

REPORT INFORMATION
  Report Type: 
  Country: None (occurrence: None)
  Receive Date: 20070601
  Receipt Date: 20070524
  Transmission Date: 20071010
  Serious: Yes (Hospitalization, Other)
  Sender: FDA-Public Use
  Company Number: PHFR2007GB01619

PATIENT
  Sex: Male

DRUGS (6)
  1. TEGRETOL [Suspect]
     Dosage: 400 MG, BID
     Route: 065
  2. TEGRETOL [Suspect]
     Dosage: 200 MG, TID
  3. KEPPRA [Suspect]
     Route: 065
  4. LYRICA [Suspect]
     Indication: CONVULSION
     Dosage: 75 MG, BID
     Route: 048
  5. LYRICA [Suspect]
     Dosage: 150 MG, BID
     Route: 065
  6. PHENOBARBITONE [Suspect]
     Dosage: 180 MG, QD
     Route: 065
     Dates: start: 20050101

REACTIONS (5)
  - BALANCE DISORDER [None]
  - DIZZINESS [None]
  - DRUG INTERACTION [None]
  - INVESTIGATION [None]
  - VISION BLURRED [None]
